FAERS Safety Report 6493358-3 (Version None)
Quarter: 2009Q4

REPORT INFORMATION
  Report Type: 
  Country: None (occurrence: None)
  Receive Date: 20091209
  Receipt Date: 20091207
  Transmission Date: 20100525
  Serious: Yes (Hospitalization, Disabling)
  Sender: FDA-Public Use
  Company Number: SP02579

PATIENT
  Age: 62 Year
  Sex: Female
  Weight: 83.4619 kg

DRUGS (6)
  1. COLAZAL [Suspect]
     Indication: CROHN'S DISEASE
     Dosage: 6.75 GM (2.25 GM, 3 IN 1 D), ORAL
     Route: 048
     Dates: end: 20090924
  2. APRISO [Suspect]
     Indication: CROHN'S DISEASE
     Dosage: 1.5 GM (1.5 GM, 1 IN 1 D), ORAL
     Route: 048
  3. PREDNISONE [Suspect]
     Dosage: 5 MG
     Dates: end: 20090921
  4. AMLODIPINE BESYLATE [Concomitant]
  5. LOVASTATIN [Concomitant]
  6. CARAFATE [Concomitant]

REACTIONS (8)
  - BLOOD PRESSURE INCREASED [None]
  - CHEST PAIN [None]
  - CHOLELITHIASIS [None]
  - DRUG INEFFECTIVE [None]
  - DYSPNOEA [None]
  - HEADACHE [None]
  - NECK PAIN [None]
  - POLYP [None]
